FAERS Safety Report 8235090-1 (Version None)
Quarter: 2012Q1

REPORT INFORMATION
  Report Type: 
  Country: None (occurrence: None)
  Receive Date: 20120326
  Receipt Date: 20120320
  Transmission Date: 20120608
  Serious: Yes (Death)
  Sender: FDA-Public Use
  Company Number: FI-PFIZER INC-2012061580

PATIENT
  Age: 33 Year
  Sex: Male

DRUGS (4)
  1. PREGABALIN [Suspect]
     Dosage: UNK
  2. CLONAZEPAM [Concomitant]
     Dosage: UNK
  3. BUPRENORPHINE [Concomitant]
     Dosage: UNK
  4. AMITRIPTYLINE [Concomitant]
     Dosage: UNK

REACTIONS (1)
  - ACCIDENTAL POISONING [None]
